FAERS Safety Report 7457236-5 (Version None)
Quarter: 2011Q1

REPORT INFORMATION
  Report Type: 
  Country: None (occurrence: None)
  Receive Date: 20110302
  Receipt Date: 20110117
  Transmission Date: 20110831
  Serious: No
  Sender: FDA-Public Use
  Company Number: 023556

PATIENT
  Sex: Female

DRUGS (2)
  1. CIMZIA [Suspect]
     Indication: RHEUMATOID ARTHRITIS
     Dosage: (SUBCUTANEOUS)
     Route: 058
     Dates: start: 20100610
  2. CIMZIA [Suspect]
     Indication: CROHN'S DISEASE
     Dosage: (SUBCUTANEOUS)
     Route: 058
     Dates: start: 20100610

REACTIONS (9)
  - ASTHMA [None]
  - EYE INFECTION [None]
  - CROHN'S DISEASE [None]
  - FOOT FRACTURE [None]
  - INSOMNIA [None]
  - CANDIDIASIS [None]
  - FATIGUE [None]
  - TIBIA FRACTURE [None]
  - PATELLA FRACTURE [None]
